FAERS Safety Report 10495111 (Version 2)
Quarter: 2014Q4

REPORT INFORMATION
  Report Type: Spontaneous
  Country: US (occurrence: US)
  Receive Date: 20141003
  Receipt Date: 20141128
  Transmission Date: 20150528
  Serious: No
  Sender: FDA-Public Use
  Company Number: US-PFIZER INC-2014268708

PATIENT
  Age: 54 Year
  Sex: Male

DRUGS (2)
  1. INLYTA [Suspect]
     Active Substance: AXITINIB
     Indication: RENAL CANCER
     Dosage: 7 MG (1 TABLET OF 5 MG PLUS 2 TABLETS OF 1 MG), TWICE DAILY
     Route: 048
     Dates: start: 20140211
  2. INLYTA [Suspect]
     Active Substance: AXITINIB
     Dosage: 300 MG, 2X/DAY

REACTIONS (6)
  - Diarrhoea [Unknown]
  - Flatulence [Unknown]
  - Abdominal distension [Unknown]
  - Dyspepsia [Unknown]
  - Renal cancer [Unknown]
  - Disease progression [Unknown]
